FAERS Safety Report 11522820 (Version 2)
Quarter: 2015Q4

REPORT INFORMATION
  Report Type: Report from Study
  Country: US (occurrence: US)
  Receive Date: 20150918
  Receipt Date: 20151111
  Transmission Date: 20160304
  Serious: Yes (Hospitalization)
  Sender: FDA-Public Use
  Company Number: US-ACTELION-A-NJ2014-108461

PATIENT
  Age: 82 Year
  Sex: Male

DRUGS (20)
  1. TRACLEER [Suspect]
     Active Substance: BOSENTAN
     Indication: PULMONARY ARTERIAL HYPERTENSION
     Dosage: 62.5 MG, BID
     Route: 048
     Dates: start: 20130307
  2. ASPIRIN. [Concomitant]
     Active Substance: ASPIRIN
     Dosage: 81 MG, QD
  3. FOSAMAX [Concomitant]
     Active Substance: ALENDRONATE SODIUM
     Dosage: 35 MG, Q1WEEK
  4. FUROSEMIDE. [Concomitant]
     Active Substance: FUROSEMIDE
     Dosage: 40 MG, QD
     Dates: start: 20140625
  5. MEVACOR [Concomitant]
     Active Substance: LOVASTATIN
     Dosage: 20 MG, QD
  6. ARCAPTA NEOHALER [Concomitant]
     Active Substance: INDACATEROL MALEATE
     Dosage: 75 MCG, QD
     Dates: start: 20141118
  7. SYSTANE (HYPROMELLOSE 2910 (4000 MPA.S)) [Concomitant]
     Active Substance: HYPROMELLOSE 2910 (4000 MPA.S)
     Dosage: UNK, BID
  8. ADCIRCA [Concomitant]
     Active Substance: TADALAFIL
     Dosage: 40 MG, QD
     Dates: start: 20120905
  9. FINASTERIDE. [Concomitant]
     Active Substance: FINASTERIDE
     Dosage: 5 MG, QD
  10. FLUTICASONE PROPIONATE. [Concomitant]
     Active Substance: FLUTICASONE PROPIONATE
     Dosage: 50 MCG, 2 SPRAYS DAILY
  11. ZOLPIDEM TARTATE [Concomitant]
     Active Substance: ZOLPIDEM TARTRATE
     Dosage: 10 MG, QPM, PRN
  12. LATANOPROST. [Concomitant]
     Active Substance: LATANOPROST
     Dosage: UNK, QPM
     Dates: start: 20150616
  13. OXYGEN. [Concomitant]
     Active Substance: OXYGEN
     Dosage: UNK, PRN
  14. LOTEMAX [Concomitant]
     Active Substance: LOTEPREDNOL ETABONATE
     Dosage: UNK, QAM
  15. METFORMIN HCL [Concomitant]
     Active Substance: METFORMIN HYDROCHLORIDE
     Dosage: 500 MG, QD
  16. PENTOXIFYLLINE. [Concomitant]
     Active Substance: PENTOXIFYLLINE
     Dosage: 400 MG, 1 TAB AM, 2 TAB PM
  17. PSYLLIUM HUSK [Concomitant]
     Active Substance: PSYLLIUM HUSK
     Dosage: UNK
     Dates: start: 20150616
  18. FERROUS GLUCONATE [Concomitant]
     Active Substance: FERROUS GLUCONATE
     Dosage: 324 MG, QD
  19. FLOMAX [Concomitant]
     Active Substance: TAMSULOSIN HYDROCHLORIDE
     Dosage: 0.4 MG, UNK
     Dates: start: 20150323
  20. LUTEIN [Concomitant]
     Active Substance: LUTEIN
     Dosage: 40 MG, UNK

REACTIONS (7)
  - Dyspnoea [Recovering/Resolving]
  - Presyncope [Recovering/Resolving]
  - Aortic valve disease [Recovering/Resolving]
  - Aortic valve replacement [Recovering/Resolving]
  - Syncope [Recovering/Resolving]
  - Concomitant disease aggravated [Recovering/Resolving]
  - Cardiac failure [Recovering/Resolving]

NARRATIVE: CASE EVENT DATE: 201402
